FAERS Safety Report 24154246 (Version 2)
Quarter: 2024Q3

REPORT INFORMATION
  Report Type: Report from Study
  Country: JP (occurrence: JP)
  Receive Date: 20240730
  Receipt Date: 20240818
  Transmission Date: 20241016
  Serious: Yes (Hospitalization, Other)
  Sender: SANOFI AVENTIS
  Company Number: JP-SA-2024SA183191

PATIENT
  Age: 65 Year
  Sex: Female
  Weight: 63 kg

DRUGS (18)
  1. ISATUXIMAB [Suspect]
     Active Substance: ISATUXIMAB
     Indication: Plasma cell myeloma refractory
     Dosage: 10 MG/KG, QW
     Route: 041
     Dates: start: 20230808, end: 20230822
  2. ISATUXIMAB [Suspect]
     Active Substance: ISATUXIMAB
     Dosage: 10 MG/KG, 1X
     Route: 041
     Dates: start: 20230830, end: 20230830
  3. ISATUXIMAB [Suspect]
     Active Substance: ISATUXIMAB
     Dosage: 10 MG/KG, 1X
     Route: 041
     Dates: start: 20230907, end: 20230907
  4. ISATUXIMAB [Suspect]
     Active Substance: ISATUXIMAB
     Dosage: 10 MG/KG, 1X
     Route: 041
     Dates: start: 20230922, end: 20230922
  5. ISATUXIMAB [Suspect]
     Active Substance: ISATUXIMAB
     Dosage: 10 MG/KG, QOW
     Route: 041
     Dates: start: 20231012, end: 20231109
  6. ISATUXIMAB [Suspect]
     Active Substance: ISATUXIMAB
     Dosage: 10 MG/KG, QOW
     Route: 041
     Dates: start: 20231207, end: 20240201
  7. CARFILZOMIB [Concomitant]
     Active Substance: CARFILZOMIB
     Indication: Plasma cell myeloma refractory
     Dosage: 20 MG/M2, QD
     Route: 065
     Dates: start: 20230808, end: 20230809
  8. CARFILZOMIB [Concomitant]
     Active Substance: CARFILZOMIB
     Dosage: 56 MG/M2, BIW
     Route: 065
     Dates: start: 20230815, end: 20230823
  9. CARFILZOMIB [Concomitant]
     Active Substance: CARFILZOMIB
     Dosage: 56 MG/M2, QW
     Route: 065
     Dates: start: 20230907, end: 20230914
  10. CARFILZOMIB [Concomitant]
     Active Substance: CARFILZOMIB
     Dosage: 56 MG/M2, 1X
     Route: 065
     Dates: start: 20230922, end: 20230922
  11. CARFILZOMIB [Concomitant]
     Active Substance: CARFILZOMIB
     Dosage: 56 MG/M2, QW
     Route: 065
     Dates: start: 20231012, end: 20231026
  12. CARFILZOMIB [Concomitant]
     Active Substance: CARFILZOMIB
     Dosage: 56 MG/M2, 1X
     Route: 065
     Dates: start: 20231109, end: 20231109
  13. CARFILZOMIB [Concomitant]
     Active Substance: CARFILZOMIB
     Dosage: 56 MG/M2, QW
     Route: 065
     Dates: start: 20231207, end: 20231221
  14. CARFILZOMIB [Concomitant]
     Active Substance: CARFILZOMIB
     Dosage: 56 MG/M2, QW
     Route: 065
     Dates: start: 20240104, end: 20240118
  15. CARFILZOMIB [Concomitant]
     Active Substance: CARFILZOMIB
     Dosage: 56 MG/M2, QW
     Route: 065
     Dates: start: 20240201, end: 20240208
  16. DEXAMETHASONE [Concomitant]
     Active Substance: DEXAMETHASONE
     Indication: Plasma cell myeloma refractory
     Dosage: 20 MG, BIW
     Route: 065
     Dates: start: 20230808, end: 20230929
  17. DEXAMETHASONE [Concomitant]
     Active Substance: DEXAMETHASONE
     Dosage: 20 MG, BIW
     Route: 065
     Dates: start: 20231012, end: 20231027
  18. DEXAMETHASONE [Concomitant]
     Active Substance: DEXAMETHASONE
     Dosage: 20 MG, BIW
     Route: 065
     Dates: start: 20231109, end: 20240209

REACTIONS (4)
  - Hepatic function abnormal [Recovering/Resolving]
  - Hepatic function abnormal [Recovering/Resolving]
  - Appendicitis [Recovering/Resolving]
  - Pyrexia [Recovered/Resolved]

NARRATIVE: CASE EVENT DATE: 20230808
